FAERS Safety Report 10401639 (Version 2)
Quarter: 2014Q3

REPORT INFORMATION
  Report Type: Spontaneous
  Country: US (occurrence: US)
  Receive Date: 20140822
  Receipt Date: 20140822
  Transmission Date: 20150326
  Serious: Yes (Hospitalization, Other)
  Sender: FDA-Public Use
  Company Number: US-009507513-2011SP019410

PATIENT
  Sex: Female
  Weight: 113.4 kg

DRUGS (4)
  1. NUVARING [Suspect]
     Active Substance: ETHINYL ESTRADIOL\ETONOGESTREL
     Dates: end: 20090421
  2. SEROQUEL [Concomitant]
     Active Substance: QUETIAPINE FUMARATE
     Indication: BIPOLAR DISORDER
  3. NUVARING [Suspect]
     Active Substance: ETHINYL ESTRADIOL\ETONOGESTREL
     Indication: CONTRACEPTION
     Dates: start: 200304
  4. AMBIEN [Concomitant]
     Active Substance: ZOLPIDEM TARTRATE
     Indication: BIPOLAR DISORDER

REACTIONS (10)
  - Pneumonia [Unknown]
  - Pleural effusion [Unknown]
  - Unintended pregnancy [Recovered/Resolved]
  - Pulmonary embolism [Recovered/Resolved]
  - Chest pain [Unknown]
  - Atelectasis [Unknown]
  - Pleurisy [Unknown]
  - Abortion missed [Recovered/Resolved]
  - Dyspnoea [Unknown]
  - Ectopic pregnancy [Recovered/Resolved]

NARRATIVE: CASE EVENT DATE: 20071211
